FAERS Safety Report 23276452 (Version 1)
Quarter: 2023Q4

REPORT INFORMATION
  Report Type: Spontaneous
  Country: CA (occurrence: None)
  Receive Date: 20231208
  Receipt Date: 20231208
  Transmission Date: 20240109
  Serious: Yes (Other)
  Sender: FDA-Public Use
  Company Number: CA-PFIZER INC-202300433901

PATIENT
  Age: 35 Year
  Sex: Female
  Weight: 70 kg

DRUGS (5)
  1. METHOTREXATE [Suspect]
     Active Substance: METHOTREXATE
     Indication: Product used for unknown indication
  2. INFLECTRA [Concomitant]
     Active Substance: INFLIXIMAB-DYYB
     Indication: Crohn^s disease
     Dates: start: 20220623, end: 20230719
  3. INFLECTRA [Concomitant]
     Active Substance: INFLIXIMAB-DYYB
     Dosage: EVERY 4 WEEKS ROUNDED TO THE NEAREST HUNDRED
     Route: 042
     Dates: start: 20230817
  4. INFLECTRA [Concomitant]
     Active Substance: INFLIXIMAB-DYYB
     Dosage: EVERY 4 WEEKS ROUNDED TO THE NEAREST HUNDRED
     Dates: start: 20231114
  5. CANNABIS SATIVA SUBSP. INDICA TOP [Concomitant]
     Active Substance: CANNABIS SATIVA SUBSP. INDICA TOP

REACTIONS (5)
  - Crohn^s disease [Unknown]
  - Anal fistula [Unknown]
  - Rectal abscess [Recovered/Resolved]
  - Ileocaecal resection [Unknown]
  - Spondyloarthropathy [Unknown]

NARRATIVE: CASE EVENT DATE: 20230101
